FAERS Safety Report 8852727 (Version 1)
Quarter: 2012Q4

REPORT INFORMATION
  Report Type: 
  Country: US (occurrence: US)
  Receive Date: 20121022
  Receipt Date: 20121022
  Transmission Date: 20130627
  Serious: Yes (Other)
  Sender: FDA-Public Use
  Company Number: US-ASTRAZENECA-2012SE78992

PATIENT
  Age: 73 Year
  Sex: Female

DRUGS (23)
  1. SYMBICORT PMDI [Suspect]
     Dosage: UNKNOWN
     Route: 055
  2. PRILOSEC [Suspect]
     Route: 048
  3. LYRICA [Concomitant]
  4. ULTRAM [Concomitant]
  5. EFFEXOR XR [Concomitant]
  6. ZOCOR [Concomitant]
  7. XANAX [Concomitant]
  8. CATAPRES [Concomitant]
  9. CLONIDINE [Concomitant]
  10. GABAPENTIN [Concomitant]
  11. ALENDRONATE [Concomitant]
  12. VAGIFEM [Concomitant]
  13. VOLTAREN GEL [Concomitant]
  14. LIDODERM PATCHES [Concomitant]
  15. MIRALAX [Concomitant]
  16. GLUCOSAMINE SULFATE [Concomitant]
  17. VITAMIN D [Concomitant]
  18. FIBERCHOICE [Concomitant]
  19. CALCIUM W/D [Concomitant]
  20. MULTIPLE VITAMINS [Concomitant]
  21. TYLENOL EXTRA STRENGTH [Concomitant]
  22. TYLENOL ARTHRITIS [Concomitant]
     Indication: ARTHRITIS
  23. FISH OIL [Concomitant]

REACTIONS (6)
  - Hiatus hernia [Unknown]
  - Macular degeneration [Unknown]
  - Neuropathy peripheral [Unknown]
  - Osteoarthritis [Unknown]
  - Depression [Unknown]
  - Dry eye [Unknown]
